FAERS Safety Report 14740849 (Version 1)
Quarter: 2018Q2

REPORT INFORMATION
  Report Type: Spontaneous
  Country: DE (occurrence: DE)
  Receive Date: 20180410
  Receipt Date: 20180410
  Transmission Date: 20180711
  Serious: Yes (Other)
  Sender: FDA-Public Use
  Company Number: DE-GLAXOSMITHKLINE-DE2018GSK058623

PATIENT
  Age: 74 Year
  Sex: Male
  Weight: 90 kg

DRUGS (1)
  1. VOLTAREN SCHMERZGEL FORTE [Suspect]
     Active Substance: DICLOFENAC DIETHYLAMINE
     Indication: ARTHRALGIA
     Dosage: UNK(1-2 TIMES PER DAY)
     Route: 061
     Dates: start: 20180227

REACTIONS (8)
  - Disability [Unknown]
  - Skin burning sensation [Recovering/Resolving]
  - Hypersensitivity [Recovering/Resolving]
  - Dermatitis [Recovering/Resolving]
  - Peripheral swelling [Recovering/Resolving]
  - Oedema peripheral [Recovering/Resolving]
  - Rash [Recovering/Resolving]
  - Respiratory distress [Recovering/Resolving]

NARRATIVE: CASE EVENT DATE: 20180227
